FAERS Safety Report 6060773-1 (Version None)
Quarter: 2009Q1

REPORT INFORMATION
  Report Type: 
  Country: None (occurrence: None)
  Receive Date: 20090202
  Receipt Date: 20090121
  Transmission Date: 20090719
  Serious: Yes (Hospitalization)
  Sender: FDA-Public Use
  Company Number: PHHY2009GB02317

PATIENT
  Age: 72 Year
  Sex: Female

DRUGS (14)
  1. PANTOPRAZOLE SODIUM [Suspect]
     Dosage: UNK
     Route: 048
  2. CARBAMAZEPINE [Suspect]
     Indication: EPILEPSY
     Dosage: 200 MG, TID
     Route: 048
  3. ANADIN [Suspect]
     Indication: MIGRAINE
     Dosage: UNK
     Route: 048
  4. ALENDRONIC ACID [Suspect]
     Indication: OSTEOARTHRITIS
     Dosage: UNK
     Route: 048
  5. CALCICHEW [Suspect]
     Indication: OSTEOARTHRITIS
     Dosage: 1 DF, QD
     Route: 048
  6. CODEINE PHOSPHATE [Suspect]
     Indication: MIGRAINE
     Dosage: 200 MG, TID
     Route: 048
  7. GAVISCON [Suspect]
     Dosage: UNK
     Route: 048
  8. RISEDRONATE SODIUM [Suspect]
     Indication: OSTEOARTHRITIS
     Dosage: 35 MG, QD
     Route: 048
  9. SERETIDE [Suspect]
     Indication: ASTHMA
     Dosage: 2 IN 1 D
  10. VENTOLIN [Suspect]
     Indication: ASTHMA
  11. LEVOTHYROXINE [Suspect]
     Indication: HYPOTHYROIDISM
     Dosage: UNK
     Route: 048
  12. WARFARIN [Suspect]
     Indication: DEEP VEIN THROMBOSIS
     Dosage: UNK
     Route: 048
  13. ZOLMITRIPTAN [Suspect]
     Indication: MIGRAINE
     Dosage: UNK
     Route: 048
  14. ACETAMINOPHEN [Suspect]

REACTIONS (2)
  - COUGH [None]
  - DYSPNOEA [None]
